FAERS Safety Report 18678123 (Version 2)
Quarter: 2021Q1

REPORT INFORMATION
  Report Type: Spontaneous
  Country: KR (occurrence: KR)
  Receive Date: 20201229
  Receipt Date: 20210106
  Transmission Date: 20210419
  Serious: Yes (Death, Other)
  Sender: FDA-Public Use
  Company Number: KR-GILEAD-2020-0510936

PATIENT
  Sex: Female

DRUGS (7)
  1. EZETIMIBE;SIMVASTATIN [Concomitant]
     Active Substance: EZETIMIBE\SIMVASTATIN
  2. LEVODROPROPIZINE [Concomitant]
     Active Substance: LEVODROPROPIZINE
  3. CARNITINE OROTATE [Concomitant]
     Active Substance: CARNITINE OROTATE
  4. VEKLURY [Suspect]
     Active Substance: REMDESIVIR
     Indication: COVID-19
     Dosage: UNK
     Route: 065
     Dates: start: 20201221, end: 20201224
  5. MOXIFLOXACIN. [Concomitant]
     Active Substance: MOXIFLOXACIN
  6. IVY [HEDERA HELIX DRY LEAF] [Concomitant]
  7. METHYL PRED [Concomitant]
     Active Substance: METHYLPREDNISOLONE

REACTIONS (1)
  - COVID-19 pneumonia [Fatal]
